FAERS Safety Report 4349029-2 (Version None)
Quarter: 2004Q2

REPORT INFORMATION
  Report Type: 
  Country: None (occurrence: None)
  Receive Date: 20040422
  Receipt Date: 20040407
  Transmission Date: 20050107
  Serious: Yes (Other)
  Sender: FDA-Public Use
  Company Number: WSDF_00390

PATIENT
  Age: 34 Year
  Sex: Female

DRUGS (4)
  1. WINRHO [Suspect]
     Dates: start: 19821101, end: 19821101
  2. WINRHO [Suspect]
     Dates: start: 19840201, end: 19840201
  3. WINRHO [Suspect]
     Dates: start: 19840701, end: 19840701
  4. WINRHO [Suspect]
     Dates: start: 19850501, end: 19850501

REACTIONS (2)
  - HEPATITIS C ANTIBODY POSITIVE [None]
  - PHARMACEUTICAL PRODUCT COMPLAINT [None]
